FAERS Safety Report 5941443-4 (Version None)
Quarter: 2008Q4

REPORT INFORMATION
  Report Type: 
  Country: None (occurrence: None)
  Receive Date: 20081031
  Receipt Date: 20081020
  Transmission Date: 20090506
  Serious: Yes (Death)
  Sender: FDA-Public Use
  Company Number: IDA-00141

PATIENT
  Age: 42 Year
  Sex: Male

DRUGS (1)
  1. INDERAL [Suspect]
     Dosage: 10 MG BID ORAL FORMULATION: TABLET
     Route: 048

REACTIONS (1)
  - DEATH [None]
